FAERS Safety Report 23566114 (Version 1)
Quarter: 2024Q1

REPORT INFORMATION
  Report Type: Spontaneous
  Country: US (occurrence: None)
  Receive Date: 20240223
  Receipt Date: 20240223
  Transmission Date: 20240409
  Serious: Yes (unspecified)
  Sender: FDA-Public Use
  Company Number: None

PATIENT
  Age: 47 Year
  Sex: Male
  Weight: 82.1 kg

DRUGS (1)
  1. CLOZAPINE [Suspect]
     Active Substance: CLOZAPINE
     Indication: Schizoaffective disorder
     Dosage: FREQUENCY : DAILY;?
     Route: 048
     Dates: start: 20240207, end: 20240221

REACTIONS (7)
  - Troponin increased [None]
  - Tachycardia [None]
  - Hyperhidrosis [None]
  - Drug intolerance [None]
  - C-reactive protein increased [None]
  - Pyrexia [None]
  - Therapy cessation [None]

NARRATIVE: CASE EVENT DATE: 20240221
